FAERS Safety Report 6676406-7 (Version None)
Quarter: 2010Q2

REPORT INFORMATION
  Report Type: 
  Country: None (occurrence: None)
  Receive Date: 20100412
  Receipt Date: 20100329
  Transmission Date: 20101027
  Serious: Yes (Other)
  Sender: FDA-Public Use
  Company Number: PHHY2010NL18996

PATIENT
  Sex: Male

DRUGS (3)
  1. ZOMETA [Suspect]
     Dosage: UNK
     Dates: start: 20100122
  2. ZOMETA [Suspect]
     Dosage: UNK
     Dates: start: 20100301
  3. ZOMETA [Suspect]
     Dosage: UNK
     Dates: start: 20100329

REACTIONS (3)
  - BACK PAIN [None]
  - GINGIVAL BLEEDING [None]
  - PAIN IN JAW [None]
